FAERS Safety Report 8297798-1 (Version None)
Quarter: 2012Q2

REPORT INFORMATION
  Report Type: 
  Country: None (occurrence: None)
  Receive Date: 20120419
  Receipt Date: 20120414
  Transmission Date: 20120825
  Serious: Yes (Death, Other)
  Sender: FDA-Public Use
  Company Number: US-ASTELLAS-2012US003938

PATIENT
  Age: 42 Year
  Sex: Female
  Weight: 63 kg

DRUGS (1)
  1. ERLOTINIB HYDROCHLORIDE [Suspect]
     Indication: THYMOMA
     Dosage: 150 MG, UID/QD, CYCLE 21 DAYS
     Route: 048
     Dates: start: 20120208, end: 20120228

REACTIONS (3)
  - LYMPHOCYTE COUNT DECREASED [None]
  - OFF LABEL USE [None]
  - NEOPLASM MALIGNANT [None]
